FAERS Safety Report 7672487-2 (Version None)
Quarter: 2011Q3

REPORT INFORMATION
  Report Type: 
  Country: None (occurrence: None)
  Receive Date: 20110804
  Receipt Date: 20110719
  Transmission Date: 20111222
  Serious: Yes (Hospitalization)
  Sender: FDA-Public Use
  Company Number: GPV/BRA/11/0019143

PATIENT
  Age: 67 Year
  Sex: Female
  Weight: 75 kg

DRUGS (3)
  1. RISPERIDONE [Suspect]
     Indication: HALLUCINATION
     Dosage: STARTED 1 MG INCREASD TO 4 MG (2 MG BD), ORAL
     Route: 048
     Dates: start: 20110501, end: 20110601
  2. RIVASTIGMINE [Concomitant]
  3. LORAZEPAM [Concomitant]

REACTIONS (3)
  - PARALYSIS [None]
  - APHASIA [None]
  - NEUROLEPTIC MALIGNANT SYNDROME [None]
